FAERS Safety Report 5607133-2 (Version None)
Quarter: 2008Q1

REPORT INFORMATION
  Report Type: 
  Country: None (occurrence: None)
  Receive Date: 20080129
  Receipt Date: 20080121
  Transmission Date: 20080703
  Serious: Yes (Other)
  Sender: FDA-Public Use
  Company Number: BR-PFIZER INC-2007102397

PATIENT
  Sex: Male
  Weight: 90 kg

DRUGS (8)
  1. VIAGRA [Suspect]
     Indication: ERECTILE DYSFUNCTION
     Route: 048
  2. CIALIS [Suspect]
  3. ENALAPRIL MALEATE [Concomitant]
     Route: 048
  4. COZAAR [Concomitant]
     Route: 048
  5. METFORMIN HCL [Concomitant]
     Route: 048
  6. MODURETIC 5-50 [Concomitant]
     Route: 048
  7. LINSEED OIL [Concomitant]
  8. ALL OTHER THERAPEUTIC PRODUCTS [Concomitant]

REACTIONS (4)
  - DRUG INEFFECTIVE [None]
  - LOW DENSITY LIPOPROTEIN INCREASED [None]
  - SYSTEMIC LUPUS ERYTHEMATOSUS [None]
  - WEIGHT INCREASED [None]
